FAERS Safety Report 24465493 (Version 1)
Quarter: 2024Q4

REPORT INFORMATION
  Report Type: Report from Study
  Country: US (occurrence: US)
  Receive Date: 20241018
  Receipt Date: 20241018
  Transmission Date: 20250115
  Serious: No
  Sender: ROCHE
  Company Number: US-ROCHE-3531861

PATIENT
  Age: 9 Year
  Sex: Female

DRUGS (3)
  1. XOLAIR [Suspect]
     Active Substance: OMALIZUMAB
     Indication: Urticaria
     Dosage: LAST INJECTION WAS ON 08/MAR/2024
     Route: 058
  2. XOLAIR [Suspect]
     Active Substance: OMALIZUMAB
  3. EPIPEN [Concomitant]
     Active Substance: EPINEPHRINE
     Dosage: 0.3 MG/ 0.3 ML, AUTO- INJECTOR

REACTIONS (2)
  - Off label use [Unknown]
  - No adverse event [Unknown]
